FAERS Safety Report 7901127 (Version 3)
Quarter: 2012Q4

REPORT INFORMATION
  Report Type: 
  Country: US (occurrence: US)
  Receive Date: 20110415
  Receipt Date: 20120928
  Transmission Date: 20130627
  Serious: No
  Sender: FDA-Public Use
  Company Number: US-ASTRAZENECA-2011SE19966

PATIENT
  Age: 59 Year
  Sex: Male

DRUGS (4)
  1. SEROQUEL [Suspect]
     Indication: INSOMNIA
     Route: 048
  2. SEROQUEL [Suspect]
     Indication: SLEEP DISORDER
     Route: 048
  3. SEROQUEL [Suspect]
     Indication: INSOMNIA
     Route: 048
  4. SEROQUEL [Suspect]
     Indication: SLEEP DISORDER
     Route: 048

REACTIONS (9)
  - Malaise [Unknown]
  - Depression [Unknown]
  - Feeling abnormal [Unknown]
  - Feeling abnormal [Unknown]
  - Feeling abnormal [Unknown]
  - Thinking abnormal [Unknown]
  - Adverse event [Unknown]
  - Drug dose omission [Unknown]
  - Off label use [Unknown]
